FAERS Safety Report 25462379 (Version 1)
Quarter: 2025Q2

REPORT INFORMATION
  Report Type: Spontaneous
  Country: US (occurrence: None)
  Receive Date: 20250619
  Receipt Date: 20250619
  Transmission Date: 20250717
  Serious: Yes (Disabling)
  Sender: FDA-CTU
  Company Number: None

PATIENT
  Age: 31 Year
  Sex: Female
  Weight: 49.5 kg

DRUGS (5)
  1. BRIVIACT [Suspect]
     Active Substance: BRIVARACETAM
     Indication: Epilepsy
     Dosage: 120 TABLET(S) 3 TIMES A DAY ORAL
     Route: 048
  2. DEPAKOTE SPRINKLES [Concomitant]
     Active Substance: DIVALPROEX SODIUM
  3. XCOPRI [Concomitant]
     Active Substance: CENOBAMATE
  4. FOLIC ACID [Concomitant]
     Active Substance: FOLIC ACID
  5. VITAMIN D3 [Concomitant]
     Active Substance: CHOLECALCIFEROL

REACTIONS (1)
  - Product use complaint [None]

NARRATIVE: CASE EVENT DATE: 20250613
